FAERS Safety Report 8916336 (Version 1)
Quarter: 2012Q4

REPORT INFORMATION
  Report Type: 
  Country: US (occurrence: US)
  Receive Date: 20121120
  Receipt Date: 20121120
  Transmission Date: 20130627
  Serious: No
  Sender: FDA-Public Use
  Company Number: US-ASTRAZENECA-2012SE84953

PATIENT
  Age: 77 Year
  Sex: Female

DRUGS (1)
  1. BRILINTA [Suspect]
     Indication: THROMBOSIS PROPHYLAXIS
     Route: 048

REACTIONS (3)
  - Flushing [Unknown]
  - Swelling [Unknown]
  - Dyspnoea [Recovering/Resolving]
